FAERS Safety Report 25893677 (Version 2)
Quarter: 2025Q4

REPORT INFORMATION
  Report Type: Spontaneous
  Country: JP (occurrence: JP)
  Receive Date: 20251008
  Receipt Date: 20251017
  Transmission Date: 20260117
  Serious: Yes (Hospitalization)
  Sender: ROCHE
  Company Number: JP-CHUGAI-2025031491

PATIENT
  Age: 61 Year
  Sex: Female

DRUGS (1)
  1. ENSPRYNG [Suspect]
     Active Substance: SATRALIZUMAB-MWGE
     Indication: Neuromyelitis optica spectrum disorder
     Dosage: UNK UNK, ONCE/4WEEKS
     Route: 058

REACTIONS (4)
  - Fracture [Not Recovered/Not Resolved]
  - Fall [Unknown]
  - Pyrexia [Unknown]
  - Abscess [Unknown]

NARRATIVE: CASE EVENT DATE: 20250101
